FAERS Safety Report 12539584 (Version 2)
Quarter: 2016Q3

REPORT INFORMATION
  Report Type: Report from Study
  Country: JP (occurrence: JP)
  Receive Date: 20160708
  Receipt Date: 20160727
  Transmission Date: 20161109
  Serious: Yes (Other)
  Sender: FDA-Public Use
  Company Number: JP-ACTELION-A-CH2016-138875

PATIENT
  Age: 70 Year
  Sex: Female

DRUGS (3)
  1. TRACLEER [Suspect]
     Active Substance: BOSENTAN
     Dosage: 62.5 MG, OD
     Route: 048
     Dates: start: 20160415
  2. TRACLEER [Suspect]
     Active Substance: BOSENTAN
     Dosage: 62.5 MG, BID
     Route: 048
     Dates: start: 20160210, end: 20160223
  3. TRACLEER [Suspect]
     Active Substance: BOSENTAN
     Indication: SCLERODERMA ASSOCIATED DIGITAL ULCER
     Dosage: 93.75 MG, BID
     Route: 048
     Dates: start: 20160224, end: 20160414

REACTIONS (5)
  - Cardiomegaly [Recovered/Resolved]
  - Pulmonary arterial pressure increased [Recovered/Resolved]
  - Pleural effusion [Recovered/Resolved]
  - Dysphagia [Recovered/Resolved]
  - Cardiac output decreased [Recovered/Resolved]

NARRATIVE: CASE EVENT DATE: 20160415
